FAERS Safety Report 22320958 (Version 1)
Quarter: 2023Q2

REPORT INFORMATION
  Report Type: Spontaneous
  Country: FR (occurrence: FR)
  Receive Date: 20230515
  Receipt Date: 20230515
  Transmission Date: 20230722
  Serious: Yes (Other)
  Sender: FDA-Public Use
  Company Number: None

PATIENT
  Age: 85 Year
  Sex: Female
  Weight: 42 kg

DRUGS (3)
  1. ACETAMINOPHEN [Suspect]
     Active Substance: ACETAMINOPHEN
     Indication: Pain
     Dosage: FROM 1 TO 3 G DAILY
     Route: 042
     Dates: start: 20230222, end: 20230227
  2. CEFOTAXIME SODIUM [Suspect]
     Active Substance: CEFOTAXIME SODIUM
     Indication: Infection
     Dosage: 1 G, 3 TIMES PER DAY
     Route: 042
     Dates: start: 20230221, end: 20230228
  3. TERBUTALINE SULFATE [Suspect]
     Active Substance: TERBUTALINE SULFATE
     Indication: Product used for unknown indication
     Dosage: UNKNOWN DOSE
     Route: 042
     Dates: start: 20230220, end: 20230224

REACTIONS (2)
  - Hyperlipasaemia [None]
  - Transaminases increased [Recovering/Resolving]

NARRATIVE: CASE EVENT DATE: 20230225
